FAERS Safety Report 14009724 (Version 2)
Quarter: 2018Q4

REPORT INFORMATION
  Report Type: Spontaneous
  Country: US (occurrence: US)
  Receive Date: 20170925
  Receipt Date: 20181001
  Transmission Date: 20190204
  Serious: Yes (Other)
  Sender: FDA-Public Use
  Company Number: PHEH2017US030827

PATIENT
  Sex: Male

DRUGS (3)
  1. COSENTYX [Suspect]
     Active Substance: SECUKINUMAB
     Indication: PSORIATIC ARTHROPATHY
     Dosage: 150 MG, UNK
     Route: 058
  2. COSENTYX [Suspect]
     Active Substance: SECUKINUMAB
     Dosage: 150 MG, BIW (EVERY 2 WEEKS)
     Route: 058
  3. COSENTYX [Suspect]
     Active Substance: SECUKINUMAB
     Dosage: 150 MG, QMO (EVERY 4 WEEKS)
     Route: 058

REACTIONS (5)
  - Psoriatic arthropathy [Unknown]
  - Joint swelling [Unknown]
  - Drug ineffective [Unknown]
  - Product prescribing error [Unknown]
  - Enthesopathy [Unknown]
